FAERS Safety Report 13704664 (Version 1)
Quarter: 2020Q3

REPORT INFORMATION
  Report Type: Spontaneous
  Country: LU (occurrence: LU)
  Receive Date: 20170630
  Receipt Date: 20170630
  Transmission Date: 20201105
  Serious: Yes (Other)
  Sender: FDA-Public Use
  Company Number: LU-ROCHE-1953238

PATIENT
  Age: 29 Year
  Sex: Female

DRUGS (6)
  1. ALECTINIB. [Suspect]
     Active Substance: ALECTINIB
     Indication: PRODUCT USED FOR UNKNOWN INDICATION
     Route: 065
     Dates: start: 201411
  2. CRIZOTINIB [Suspect]
     Active Substance: CRIZOTINIB
     Route: 065
     Dates: start: 201407
  3. AVASTIN [Suspect]
     Active Substance: BEVACIZUMAB
     Indication: PRODUCT USED FOR UNKNOWN INDICATION
     Route: 065
     Dates: start: 201206, end: 201305
  4. CRIZOTINIB [Suspect]
     Active Substance: CRIZOTINIB
     Indication: PRODUCT USED FOR UNKNOWN INDICATION
     Route: 065
     Dates: start: 201206, end: 201305
  5. ALIMTA [Suspect]
     Active Substance: PEMETREXED DISODIUM
     Indication: PRODUCT USED FOR UNKNOWN INDICATION
     Route: 065
     Dates: start: 201206, end: 201305
  6. CDDP [Concomitant]
     Active Substance: CISPLATIN

REACTIONS (5)
  - Metastases to central nervous system [Unknown]
  - Myalgia [Unknown]
  - Malignant neoplasm of pleura [Unknown]
  - Lung disorder [Unknown]
  - Adenocarcinoma [Unknown]

NARRATIVE: CASE EVENT DATE: 201210
